FAERS Safety Report 7486460-0 (Version None)
Quarter: 2011Q2

REPORT INFORMATION
  Report Type: 
  Country: None (occurrence: None)
  Receive Date: 20110517
  Receipt Date: 20110506
  Transmission Date: 20111010
  Serious: Yes (Hospitalization)
  Sender: FDA-Public Use
  Company Number: DE-UCBSA-030995

PATIENT
  Sex: Female
  Weight: 59 kg

DRUGS (3)
  1. VIMPAT [Suspect]
     Indication: EPILEPSY
     Dosage: 100-50-0-300
     Route: 048
     Dates: start: 20090922
  2. KEPPRA [Concomitant]
     Indication: EPILEPSY
     Dates: start: 20090924
  3. APYDAN EXTENT [Concomitant]
     Indication: EPILEPSY
     Dates: start: 20090814

REACTIONS (1)
  - CONVULSION [None]
